FAERS Safety Report 10228671 (Version 1)
Quarter: 2014Q2

REPORT INFORMATION
  Report Type: Report from Study
  Country: US (occurrence: US)
  Receive Date: 20140610
  Receipt Date: 20140610
  Transmission Date: 20141212
  Serious: Yes (Other)
  Sender: FDA-Public Use
  Company Number: US-BAXTER-2014BAX029295

PATIENT
  Age: 55 Year
  Sex: Female

DRUGS (2)
  1. GAMMAGARD LIQUID [Suspect]
     Indication: PRODUCT USED FOR UNKNOWN INDICATION
     Route: 042
  2. GAMMAGARD LIQUID [Suspect]
     Indication: PRODUCT USED FOR UNKNOWN INDICATION
     Route: 058
     Dates: start: 20140522

REACTIONS (10)
  - Adverse drug reaction [Unknown]
  - Headache [Unknown]
  - Eye haemorrhage [Unknown]
  - Skin haemorrhage [Unknown]
  - Bone pain [Unknown]
  - Myalgia [Unknown]
  - Nausea [Unknown]
  - Abdominal pain [Recovered/Resolved]
  - Hyperhidrosis [Recovered/Resolved]
  - Asthma [Recovered/Resolved]
